FAERS Safety Report 8236109-4 (Version None)
Quarter: 2012Q1

REPORT INFORMATION
  Report Type: 
  Country: None (occurrence: None)
  Receive Date: 20120327
  Receipt Date: 20120319
  Transmission Date: 20120608
  Serious: Yes (Hospitalization, Other)
  Sender: FDA-Public Use
  Company Number: US-BIOGENIDEC-2012BI006295

PATIENT
  Age: 70 Year
  Sex: Female

DRUGS (2)
  1. AVONEX [Suspect]
     Indication: MULTIPLE SCLEROSIS
     Route: 030
     Dates: start: 20031020
  2. ANESTHESIA [Concomitant]

REACTIONS (4)
  - HIP ARTHROPLASTY [None]
  - DEMENTIA [None]
  - ANAESTHETIC COMPLICATION [None]
  - FALL [None]
